FAERS Safety Report 5854896-7 (Version None)
Quarter: 2008Q3

REPORT INFORMATION
  Report Type: 
  Country: None (occurrence: None)
  Receive Date: 20080822
  Receipt Date: 20080227
  Transmission Date: 20090109
  Serious: No
  Sender: FDA-Public Use
  Company Number: US-ABBOTT-08P-163-0440419-00

PATIENT
  Sex: Female

DRUGS (1)
  1. SYNTHROID [Suspect]
     Indication: HYPOTHYROIDISM
     Route: 048
     Dates: start: 20000101

REACTIONS (4)
  - BLOOD THYROID STIMULATING HORMONE INCREASED [None]
  - HEART RATE INCREASED [None]
  - INSOMNIA [None]
  - WEIGHT INCREASED [None]
